FAERS Safety Report 14671788 (Version 1)
Quarter: 2018Q1

REPORT INFORMATION
  Report Type: Spontaneous
  Country: US (occurrence: US)
  Receive Date: 20180323
  Receipt Date: 20180323
  Transmission Date: 20180509
  Serious: No
  Sender: FDA-Public Use
  Company Number: US-009507513-1802USA011904

PATIENT
  Age: 44 Year
  Sex: Female

DRUGS (6)
  1. NOXAFIL [Suspect]
     Active Substance: POSACONAZOLE
     Indication: BRONCHOPULMONARY ASPERGILLOSIS
     Dosage: UNK
     Route: 048
  2. ACYCLOVIR. [Concomitant]
     Active Substance: ACYCLOVIR
     Dosage: UNK
     Route: 048
  3. PENTAMIDINE ISETHIONATE. [Concomitant]
     Active Substance: PENTAMIDINE ISETHIONATE
     Dosage: UNK, QM
  4. MICAFUNGIN [Concomitant]
     Active Substance: MICAFUNGIN
     Dosage: UNK
     Route: 042
  5. NOXAFIL [Suspect]
     Active Substance: POSACONAZOLE
     Indication: ASPERGILLUS INFECTION
  6. LEVOFLOXACIN. [Concomitant]
     Active Substance: LEVOFLOXACIN
     Dosage: UNK
     Route: 048

REACTIONS (2)
  - Aspartate aminotransferase increased [Recovered/Resolved]
  - Alanine aminotransferase increased [Recovered/Resolved]
